FAERS Safety Report 19736305 (Version 1)
Quarter: 2021Q3

REPORT INFORMATION
  Report Type: Report from Study
  Country: US (occurrence: US)
  Receive Date: 20210823
  Receipt Date: 20210823
  Transmission Date: 20211014
  Serious: Yes (Death)
  Sender: FDA-Public Use
  Company Number: US-ASTRAZENECA-2021A691476

PATIENT

DRUGS (1)
  1. TUDORZA [Suspect]
     Active Substance: ACLIDINIUM BROMIDE
     Dosage: 400 MCG INH 60
     Route: 055

REACTIONS (1)
  - Death [Fatal]

NARRATIVE: CASE EVENT DATE: 20210811
